FAERS Safety Report 10777101 (Version 1)
Quarter: 2015Q1

REPORT INFORMATION
  Report Type: Spontaneous
  Country: US (occurrence: None)
  Receive Date: 20150206
  Receipt Date: 20150206
  Transmission Date: 20150721
  Serious: No
  Sender: FDA-Public Use
  Company Number: None

PATIENT
  Age: 56 Year
  Sex: Female
  Weight: 52.62 kg

DRUGS (11)
  1. ESTRIOL CREAM [Concomitant]
  2. MULTIVITAMIN [Concomitant]
     Active Substance: VITAMINS
  3. NATURE-THROID [Concomitant]
     Active Substance: THYROID, PORCINE
  4. NITROFURANTOIN 100 MG MYLAN 3432 AND 3422 [Suspect]
     Active Substance: NITROFURANTOIN
     Indication: ESCHERICHIA URINARY TRACT INFECTION
     Dosage: 1 PILL TWICE DAILY TAKEN BY MOUTH
     Route: 048
     Dates: start: 20150127, end: 20150204
  5. LOW DOSE NATLROROXENE [Concomitant]
  6. MAGNESIUM [Concomitant]
     Active Substance: MAGNESIUM
  7. VITAMIN D [Concomitant]
     Active Substance: CHOLECALCIFEROL
  8. SELENIUM [Concomitant]
     Active Substance: SELENIUM
  9. FOLIC ACID. [Concomitant]
     Active Substance: FOLIC ACID
  10. ZINC [Concomitant]
     Active Substance: ZINC\ZINC CHLORIDE
  11. PROGESTERONE. [Concomitant]
     Active Substance: PROGESTERONE

REACTIONS (4)
  - Neck pain [None]
  - Gastroenteritis viral [None]
  - Rash [None]
  - Urticaria [None]

NARRATIVE: CASE EVENT DATE: 20150205
